FAERS Safety Report 11934740 (Version 1)
Quarter: 2016Q1

REPORT INFORMATION
  Report Type: Spontaneous
  Country: US (occurrence: None)
  Receive Date: 20160120
  Receipt Date: 20160120
  Transmission Date: 20160526
  Serious: No
  Sender: FDA-Public Use
  Company Number: None

PATIENT
  Age: 45 Year
  Sex: Female
  Weight: 87.09 kg

DRUGS (9)
  1. HYDROCORTISONE/LIDOCAINE [Concomitant]
     Active Substance: HYDROCORTISONE ACETATE\LIDOCAINE HYDROCHLORIDE
  2. CHLORAPREP ONE-STEP [Suspect]
     Active Substance: CHLORHEXIDINE GLUCONATE\ISOPROPYL ALCOHOL
     Indication: INFECTION PROPHYLAXIS
     Dosage: SURGERY PREP  ONE TIME/PRE OP  APPLIED TO A SURFACE, USUALLY THE SKIN
     Dates: start: 20160115, end: 20160115
  3. AUGMENTIN [Concomitant]
     Active Substance: AMOXICILLIN\CLAVULANATE POTASSIUM
  4. TRAMADOL. [Concomitant]
     Active Substance: TRAMADOL
  5. FISH OIL [Concomitant]
     Active Substance: FISH OIL
  6. SYNTHROID [Concomitant]
     Active Substance: LEVOTHYROXINE SODIUM
  7. VITAMIN D [Concomitant]
     Active Substance: CHOLECALCIFEROL
  8. CHLORAPREP ONE-STEP [Suspect]
     Active Substance: CHLORHEXIDINE GLUCONATE\ISOPROPYL ALCOHOL
     Indication: THERAPEUTIC SKIN CARE TOPICAL
     Dosage: SURGERY PREP  ONE TIME/PRE OP  APPLIED TO A SURFACE, USUALLY THE SKIN
     Dates: start: 20160115, end: 20160115
  9. BENADRYL CREAM [Concomitant]
     Active Substance: DIPHENHYDRAMINE\ZINC ACETATE

REACTIONS (4)
  - Application site pruritus [None]
  - Application site pain [None]
  - Rash [None]
  - Drug ineffective [None]

NARRATIVE: CASE EVENT DATE: 20160115
